FAERS Safety Report 7916462-9 (Version None)
Quarter: 2011Q4

REPORT INFORMATION
  Report Type: 
  Country: None (occurrence: None)
  Receive Date: 20111114
  Receipt Date: 20111103
  Transmission Date: 20120403
  Serious: Yes (Death, Hospitalization)
  Sender: FDA-Public Use
  Company Number: 126097

PATIENT
  Age: 38 Year
  Sex: Female

DRUGS (1)
  1. CYCLOSPORINE [Suspect]
     Indication: STEM CELL TRANSPLANT
     Dosage: 5000MG X 1 TIME

REACTIONS (8)
  - MEDICATION ERROR [None]
  - CLONUS [None]
  - RENAL FAILURE [None]
  - ACUTE RESPIRATORY DISTRESS SYNDROME [None]
  - TOXICITY TO VARIOUS AGENTS [None]
  - IDIOPATHIC PNEUMONIA SYNDROME [None]
  - POSTERIOR REVERSIBLE ENCEPHALOPATHY SYNDROME [None]
  - OVERDOSE [None]
